FAERS Safety Report 7754733-X (Version None)
Quarter: 2011Q3

REPORT INFORMATION
  Report Type: 
  Country: None (occurrence: None)
  Receive Date: 20110915
  Receipt Date: 20110906
  Transmission Date: 20111222
  Serious: Yes (Other)
  Sender: FDA-Public Use
  Company Number: US-MYLANLABS-2011S1018691

PATIENT
  Age: 58 Year
  Sex: Female
  Weight: 88.45 kg

DRUGS (5)
  1. FENTANYL-100 [Suspect]
     Indication: BACK PAIN
     Dosage: CHANGED Q72H
     Route: 062
     Dates: start: 20110701, end: 20110801
  2. FENTANYL-100 [Suspect]
     Indication: PAIN IN EXTREMITY
     Dosage: CHANGED Q72H
     Route: 062
     Dates: start: 20110701, end: 20110801
  3. FENTANYL-100 [Suspect]
     Dosage: CHANGED Q72H
     Route: 062
     Dates: start: 20110804, end: 20110801
  4. FENTANYL-100 [Suspect]
     Dosage: CHANGED Q72H
     Route: 062
     Dates: start: 20110804, end: 20110801
  5. LORAZEPAM [Concomitant]

REACTIONS (13)
  - DYSPNOEA [None]
  - RASH PRURITIC [None]
  - DRUG INEFFECTIVE [None]
  - PAIN [None]
  - THROAT TIGHTNESS [None]
  - DISORIENTATION [None]
  - APPLICATION SITE RASH [None]
  - SWELLING FACE [None]
  - APPLICATION SITE PRURITUS [None]
  - FEELING OF DESPAIR [None]
  - WITHDRAWAL SYNDROME [None]
  - CRYING [None]
  - APPLICATION SITE SWELLING [None]
